FAERS Safety Report 12124428 (Version 1)
Quarter: 2016Q1

REPORT INFORMATION
  Report Type: Spontaneous
  Country: ES (occurrence: ES)
  Receive Date: 20160229
  Receipt Date: 20160229
  Transmission Date: 20160526
  Serious: Yes (Other)
  Sender: FDA-Public Use
  Company Number: ES-ROCHE-1717154

PATIENT
  Sex: Male

DRUGS (7)
  1. OMEPRAZOL [Concomitant]
     Active Substance: OMEPRAZOLE
     Route: 048
  2. MABTHERA [Suspect]
     Active Substance: RITUXIMAB
     Indication: CHRONIC LYMPHOCYTIC LEUKAEMIA
     Dosage: 100 MG CONCENTRADO PARA SOLUCION PARA PERFUSION, 2 VIALES DE
     Route: 042
     Dates: start: 20160107, end: 20160107
  3. ADCETRIS [Suspect]
     Active Substance: BRENTUXIMAB VEDOTIN
     Indication: CHRONIC LYMPHOCYTIC LEUKAEMIA
     Dosage: 50MG POLVO PARA CONCENTRADO PARA SOLUCION PARA PERFUSION, 1 V
     Route: 042
     Dates: start: 20160107, end: 20160107
  4. ATORVASTATINA [Concomitant]
     Active Substance: ATORVASTATIN
     Indication: HYPERCHOLESTEROLAEMIA
     Route: 048
  5. ADIRO [Concomitant]
     Active Substance: ASPIRIN
     Dosage: 300 MG COMPRIMIDOS GASTRORRESISTENTES EFG, 30 COMPRIMIDOS
     Route: 048
  6. SEPTRIN [Concomitant]
     Active Substance: SULFAMETHOXAZOLE\TRIMETHOPRIM
     Dosage: 80 MG/400 MG COMPRIMIDOS , 20 COMPRIMIDOS
     Route: 048
  7. ACFOL [Concomitant]
     Active Substance: FOLIC ACID
     Dosage: 5 MG COMPRIMIDOS , 28 COMPRIMIDOS
     Route: 048

REACTIONS (3)
  - Acute kidney injury [Recovered/Resolved]
  - Lung infection [Recovered/Resolved]
  - Septic shock [Recovered/Resolved]

NARRATIVE: CASE EVENT DATE: 20160108
